FAERS Safety Report 14083771 (Version 2)
Quarter: 2017Q4

REPORT INFORMATION
  Report Type: Spontaneous
  Country: FR (occurrence: FR)
  Receive Date: 20171013
  Receipt Date: 20171122
  Transmission Date: 20180321
  Serious: Yes (Other)
  Sender: FDA-Public Use
  Company Number: FR-MERCK KGAA-2029965

PATIENT
  Age: 68 Year
  Sex: Female

DRUGS (1)
  1. NOVOTHYROX [Suspect]
     Active Substance: LEVOTHYROXINE SODIUM
     Indication: HYPOTHYROIDISM
     Route: 048
     Dates: start: 19920404, end: 2017

REACTIONS (11)
  - Fatigue [Unknown]
  - Myalgia [Unknown]
  - Muscle spasms [Unknown]
  - Diffuse alopecia [Unknown]
  - Asthenopia [Unknown]
  - Arthralgia [Unknown]
  - Migraine [Unknown]
  - Anxiety [Unknown]
  - Gastrointestinal pain [Unknown]
  - Blood thyroid stimulating hormone increased [Recovered/Resolved]
  - Palpitations [Unknown]

NARRATIVE: CASE EVENT DATE: 20170414
